FAERS Safety Report 20141655 (Version 2)
Quarter: 2021Q4

REPORT INFORMATION
  Report Type: Spontaneous
  Country: LB (occurrence: LB)
  Receive Date: 20211202
  Receipt Date: 20211215
  Transmission Date: 20220304
  Serious: Yes (Death, Other)
  Sender: FDA-Public Use
  Company Number: LB-ELI_LILLY_AND_COMPANY-LB202111012711

PATIENT
  Age: 58 Year
  Sex: Male

DRUGS (2)
  1. CYRAMZA [Suspect]
     Active Substance: RAMUCIRUMAB
     Indication: Gastric cancer stage II
     Dosage: UNK UNK, UNKNOWN
     Route: 065
  2. PACLITAXEL [Concomitant]
     Active Substance: PACLITAXEL
     Indication: Gastric cancer stage II

REACTIONS (6)
  - Neutropenia [Fatal]
  - Hepatic failure [Fatal]
  - Sepsis [Fatal]
  - Hypoglycaemia [Unknown]
  - Pancytopenia [Unknown]
  - Malignant neoplasm progression [Unknown]
